FAERS Safety Report 16581048 (Version 1)
Quarter: 2019Q3

REPORT INFORMATION
  Report Type: Spontaneous
  Country: DE (occurrence: DE)
  Receive Date: 20190716
  Receipt Date: 20190716
  Transmission Date: 20191004
  Serious: Yes (Hospitalization)
  Sender: FDA-Public Use
  Company Number: DE-PFIZER INC-2019299143

PATIENT
  Age: 18 Year
  Sex: Male

DRUGS (9)
  1. CYCLOPHOSPHAMID [Suspect]
     Active Substance: CYCLOPHOSPHAMIDE
     Dosage: UNK MG, UNK
     Dates: end: 20170509
  2. ADRIAMYCIN [Suspect]
     Active Substance: DOXORUBICIN HYDROCHLORIDE
     Dosage: UNK MG, UNK
     Dates: end: 20170509
  3. VINCRISTIN [Suspect]
     Active Substance: VINCRISTINE
     Dosage: UNK MG, UNK
     Dates: end: 20170509
  4. PREDNISOLONE. [Suspect]
     Active Substance: PREDNISOLONE
     Dosage: UNK MG, UNK
     Dates: end: 20170509
  5. BLEOMYCIN [Suspect]
     Active Substance: BLEOMYCIN SULFATE
     Dosage: UNK MG, UNK
     Dates: end: 20170509
  6. ETOPOSID [Suspect]
     Active Substance: ETOPOSIDE
     Dosage: UNK MG, UNK
     Dates: end: 20170509
  7. PROCARBAZINE [Suspect]
     Active Substance: PROCARBAZINE
     Dosage: UNK MG, UNK
     Dates: end: 20170509
  8. CIPROFLOXACIN. [Concomitant]
     Active Substance: CIPROFLOXACIN
     Dosage: 500 MG, UNK
     Dates: end: 20170516
  9. COLECALCIFEROL [Concomitant]
     Active Substance: CHOLECALCIFEROL
     Dosage: 1000 IU, 1X/DAY, 1-0-0-0

REACTIONS (3)
  - Pyrexia [Unknown]
  - Productive cough [Unknown]
  - Cough [Unknown]
